FAERS Safety Report 7332543-5 (Version None)
Quarter: 2011Q1

REPORT INFORMATION
  Report Type: 
  Country: None (occurrence: None)
  Receive Date: 20110304
  Receipt Date: 20110221
  Transmission Date: 20110831
  Serious: Yes (Hospitalization, Other)
  Sender: FDA-Public Use
  Company Number: PHHO2011JP01903

PATIENT
  Sex: Male

DRUGS (8)
  1. LASIX [Concomitant]
  2. BLINDED ALISKIREN [Suspect]
     Dosage: CODE NOT BROKEN
     Route: 048
     Dates: start: 20100805
  3. BLINDED ENALAPRIL [Suspect]
     Dosage: CODE NOT BROKEN
     Route: 048
     Dates: start: 20100805
  4. COMPARATOR ENALAPRIL [Suspect]
     Indication: CARDIAC FAILURE
     Dosage: 10 MG, UNK
     Route: 048
     Dates: start: 20100518
  5. ARTIST [Concomitant]
  6. ALISKIREN [Suspect]
     Indication: CARDIAC FAILURE
     Dosage: 150 MG, UNK
     Route: 048
     Dates: start: 20100628
  7. GOODMIN [Concomitant]
  8. BLINDED NO TREATMENT RECEIVED [Suspect]
     Dosage: CODE NOT BROKEN
     Route: 048
     Dates: start: 20100805

REACTIONS (7)
  - VOLUME BLOOD INCREASED [None]
  - ALCOHOL ABUSE [None]
  - DRUG ADMINISTRATION ERROR [None]
  - CARDIAC FAILURE CONGESTIVE [None]
  - CHEST DISCOMFORT [None]
  - DYSPNOEA [None]
  - CARDIAC FAILURE [None]
